FAERS Safety Report 7250835-5 (Version None)
Quarter: 2011Q1

REPORT INFORMATION
  Report Type: 
  Country: None (occurrence: None)
  Receive Date: 20110128
  Receipt Date: 20110119
  Transmission Date: 20110831
  Serious: Yes (Hospitalization, Other)
  Sender: FDA-Public Use
  Company Number: US-JNJFOC-20101007429

PATIENT
  Sex: Female
  Weight: 99.79 kg

DRUGS (7)
  1. LEVAQUIN [Suspect]
     Indication: BRONCHITIS
     Route: 048
  2. LEVAQUIN [Suspect]
     Indication: PNEUMONIA
     Route: 048
  3. VICODIN [Concomitant]
  4. LANTUS [Concomitant]
  5. AMITIZA [Concomitant]
  6. FLEXERIL [Concomitant]
  7. LEVOXYL [Concomitant]

REACTIONS (2)
  - TENDON RUPTURE [None]
  - LIGAMENT RUPTURE [None]
